FAERS Safety Report 10478187 (Version 2)
Quarter: 2014Q3

REPORT INFORMATION
  Report Type: Spontaneous
  Country: GB (occurrence: GB)
  Receive Date: 20140926
  Receipt Date: 20140926
  Transmission Date: 20150326
  Serious: Yes (Hospitalization)
  Sender: FDA-Public Use
  Company Number: GB-ABBVIE-12P-167-0948614-00

PATIENT
  Sex: Female

DRUGS (3)
  1. NORMOSANG [Suspect]
     Active Substance: HEME
     Indication: PORPHYRIA ACUTE
     Dosage: 250 MG DAILY
     Route: 065
     Dates: start: 199603, end: 199603
  2. VALPROATE SODIUM. [Suspect]
     Active Substance: VALPROATE SODIUM
     Indication: EPILEPSY
     Route: 065
     Dates: start: 199503
  3. DEXTROSE. [Concomitant]
     Active Substance: DEXTROSE
     Indication: PRODUCT USED FOR UNKNOWN INDICATION
     Dosage: (PREV.)

REACTIONS (2)
  - Injection site thrombosis [Unknown]
  - Thrombocytopenia [Recovered/Resolved]

NARRATIVE: CASE EVENT DATE: 1996
